FAERS Safety Report 9219655 (Version 1)
Quarter: 2013Q2

REPORT INFORMATION
  Report Type: Spontaneous
  Country: GB (occurrence: GB)
  Receive Date: 20130409
  Receipt Date: 20130409
  Transmission Date: 20140414
  Serious: Yes (Hospitalization)
  Sender: FDA-Public Use
  Company Number: GB-ROCHE-1207523

PATIENT
  Age: 69 Year
  Sex: Male

DRUGS (9)
  1. METALYSE [Suspect]
     Indication: MYOCARDIAL INFARCTION
     Route: 042
     Dates: start: 20030920
  2. ASPIRIN [Concomitant]
     Indication: ACUTE MYOCARDIAL INFARCTION
     Route: 048
     Dates: start: 20030921
  3. ATENOLOL [Concomitant]
     Indication: ACUTE MYOCARDIAL INFARCTION
     Route: 048
     Dates: start: 20030926
  4. RAMIPRIL [Concomitant]
     Indication: ACUTE MYOCARDIAL INFARCTION
     Route: 048
     Dates: start: 20030921
  5. SIMVASTATIN [Concomitant]
     Indication: ACUTE MYOCARDIAL INFARCTION
     Route: 048
     Dates: start: 20030925
  6. IMDUR [Concomitant]
     Indication: ACUTE MYOCARDIAL INFARCTION
     Route: 048
     Dates: start: 20030929
  7. CLOPIDOGREL [Concomitant]
     Indication: ACUTE MYOCARDIAL INFARCTION
     Route: 048
     Dates: start: 20030929
  8. CLEXANE [Concomitant]
     Indication: ACUTE MYOCARDIAL INFARCTION
     Route: 058
     Dates: start: 20030921
  9. CLEXANE [Concomitant]
     Route: 058
     Dates: start: 20030929

REACTIONS (1)
  - Vasculitis [Not Recovered/Not Resolved]
